FAERS Safety Report 10531988 (Version 1)
Quarter: 2014Q4

REPORT INFORMATION
  Report Type: Spontaneous
  Country: US (occurrence: US)
  Receive Date: 20141021
  Receipt Date: 20141021
  Transmission Date: 20150529
  Serious: Yes (Other)
  Sender: FDA-Public Use
  Company Number: US-ALLERGAN-1422033US

PATIENT
  Age: 63 Year
  Sex: Female
  Weight: 68.27 kg

DRUGS (2)
  1. BOTOX [Suspect]
     Active Substance: ONABOTULINUMTOXINA
     Indication: NECK PAIN
  2. BOTOX [Suspect]
     Active Substance: ONABOTULINUMTOXINA
     Indication: BACK PAIN
     Dosage: UNK, SINGLE
     Dates: start: 201405, end: 201405

REACTIONS (2)
  - Off label use [Unknown]
  - Lung neoplasm malignant [Unknown]
